FAERS Safety Report 4507004-9 (Version None)
Quarter: 2004Q4

REPORT INFORMATION
  Report Type: 
  Country: None (occurrence: None)
  Receive Date: 20041117
  Receipt Date: 20041102
  Transmission Date: 20050328
  Serious: Yes (Other)
  Sender: FDA-Public Use
  Company Number: 2004EU001970

PATIENT
  Age: 56 Year
  Sex: Female

DRUGS (3)
  1. PROGRAF [Suspect]
     Indication: RENAL TRANSPLANT
     Dosage: ORAL
     Route: 048
  2. MYCOPHENOLATE MOFETIL          (MYCOPHENOLATE MOFETIL) [Concomitant]
  3. CORTICOSTEROIDS [Concomitant]

REACTIONS (3)
  - RENAL FAILURE ACUTE [None]
  - RENAL INTERSTITIAL FIBROSIS [None]
  - RENAL TUBULAR DISORDER [None]
